FAERS Safety Report 6291060-4 (Version None)
Quarter: 2009Q3

REPORT INFORMATION
  Report Type: 
  Country: None (occurrence: None)
  Receive Date: 20090730
  Receipt Date: 20090720
  Transmission Date: 20100115
  Serious: Yes (Death, Hospitalization, Other)
  Sender: FDA-Public Use
  Company Number: US-PFIZER INC-2009243892

PATIENT
  Sex: Female

DRUGS (6)
  1. LYRICA [Suspect]
     Indication: MENISCUS LESION
     Dosage: 150 MG, 3X/DAY
  2. LYRICA [Suspect]
     Indication: COMPLEX REGIONAL PAIN SYNDROME
  3. METHADONE [Suspect]
  4. TRAMADOL [Suspect]
  5. CYMBALTA [Suspect]
     Dosage: 60 MG, 1X/DAY
  6. PERCOCET [Concomitant]

REACTIONS (6)
  - DEATH [None]
  - OEDEMA PERIPHERAL [None]
  - OVERDOSE [None]
  - PAIN IN EXTREMITY [None]
  - SEDATION [None]
  - VOMITING [None]
